FAERS Safety Report 7944461-X (Version None)
Quarter: 2011Q4

REPORT INFORMATION
  Report Type: 
  Country: None (occurrence: None)
  Receive Date: 20111122
  Receipt Date: 20110715
  Transmission Date: 20120403
  Serious: Yes (Other)
  Sender: FDA-Public Use
  Company Number: PHHY2011US47849

PATIENT
  Age: 57 Year
  Sex: Female

DRUGS (4)
  1. ZOCOR [Concomitant]
  2. GILENYA [Suspect]
     Indication: MULTIPLE SCLEROSIS
     Dosage: 0.5 MG, QD, ORAL
     Route: 048
     Dates: start: 20110523, end: 20110629
  3. COPAXONE [Concomitant]
  4. VALTREX [Concomitant]

REACTIONS (7)
  - FATIGUE [None]
  - NAUSEA [None]
  - HERPES ZOSTER [None]
  - DISORIENTATION [None]
  - DYSGEUSIA [None]
  - HYPERHIDROSIS [None]
  - DECREASED INTEREST [None]
